FAERS Safety Report 9949009 (Version 7)
Quarter: 2014Q3

REPORT INFORMATION
  Report Type: Spontaneous
  Country: TR (occurrence: TR)
  Receive Date: 20140304
  Receipt Date: 20140731
  Transmission Date: 20150326
  Serious: Yes (Other)
  Sender: FDA-Public Use
  Company Number: TR-AMGEN-TURSP2012024160

PATIENT
  Age: 20 Year
  Sex: Female

DRUGS (3)
  1. ENBREL [Suspect]
     Active Substance: ETANERCEPT
     Indication: PSORIATIC ARTHROPATHY
     Dosage: 50 MG, WEEKLY
     Route: 058
     Dates: start: 20111117, end: 201208
  2. ENBREL [Suspect]
     Active Substance: ETANERCEPT
     Dosage: 50 MG, WEEKLY
     Route: 058
     Dates: start: 20140105, end: 201404
  3. ENBREL [Suspect]
     Active Substance: ETANERCEPT
     Dosage: UNK
     Route: 065
     Dates: end: 2013

REACTIONS (16)
  - Pain [Not Recovered/Not Resolved]
  - Increased appetite [Not Recovered/Not Resolved]
  - Cardiac discomfort [Not Recovered/Not Resolved]
  - Injection site haemorrhage [Recovered/Resolved]
  - Respiratory tract infection [Recovering/Resolving]
  - Injection site pain [Recovering/Resolving]
  - Hepatic steatosis [Not Recovered/Not Resolved]
  - Muscle spasms [Not Recovered/Not Resolved]
  - Burning sensation [Not Recovered/Not Resolved]
  - Injection site swelling [Recovering/Resolving]
  - Injection site induration [Recovering/Resolving]
  - Off label use [Unknown]
  - Blister [Not Recovered/Not Resolved]
  - Upper-airway cough syndrome [Unknown]
  - Influenza [Not Recovered/Not Resolved]
  - Tooth infection [Recovered/Resolved]

NARRATIVE: CASE EVENT DATE: 20111117
